FAERS Safety Report 6277782-X (Version None)
Quarter: 2009Q3

REPORT INFORMATION
  Report Type: 
  Country: None (occurrence: None)
  Receive Date: 20090717
  Receipt Date: 20090717
  Transmission Date: 20100115
  Serious: Yes (Hospitalization)
  Sender: FDA-Public Use
  Company Number: None

PATIENT
  Age: 55 Year
  Sex: Male
  Weight: 85 kg

DRUGS (3)
  1. ABCIXIMAB 2MG/ML LILLY [Suspect]
     Indication: ACUTE MYOCARDIAL INFARCTION
     Dosage: 21.1MG X 1 IV BOLUS;  36MCG/ML AT 16.8ML/H RAN FOR ABOUT 8H IV DRIP
     Route: 040
     Dates: start: 20090713, end: 20090714
  2. ASPIRIN [Concomitant]
  3. PLAVIX [Concomitant]

REACTIONS (1)
  - PLATELET COUNT DECREASED [None]
